FAERS Safety Report 4629030-1 (Version None)
Quarter: 2005Q2

REPORT INFORMATION
  Report Type: 
  Country: None (occurrence: None)
  Receive Date: 20050405
  Receipt Date: 20050405
  Transmission Date: 20051028
  Serious: Yes (Life-Threatening, Hospitalization)
  Sender: FDA-Public Use
  Company Number: None

PATIENT
  Sex: Male
  Weight: 127 kg

DRUGS (1)
  1. DEXAMETHASONE [Suspect]
     Indication: B PRECURSOR TYPE ACUTE LEUKAEMIA
     Dosage: 15.5MG X 5D IV Q28D.
     Route: 042
     Dates: start: 20040303, end: 20041212

REACTIONS (4)
  - BURNING SENSATION [None]
  - DISCOMFORT [None]
  - PAIN [None]
  - VOMITING [None]
